FAERS Safety Report 7836392-0 (Version None)
Quarter: 2011Q4

REPORT INFORMATION
  Report Type: 
  Country: None (occurrence: None)
  Receive Date: 20111024
  Receipt Date: 20110712
  Transmission Date: 20120403
  Serious: No
  Sender: FDA-Public Use
  Company Number: US-BAYER-2011-061355

PATIENT
  Sex: Female

DRUGS (1)
  1. ALEVE (CAPLET) [Suspect]
     Dosage: 12 U, UNK
     Route: 048

REACTIONS (1)
  - DRUG TOLERANCE INCREASED [None]
